FAERS Safety Report 5772782-8 (Version None)
Quarter: 2008Q2

REPORT INFORMATION
  Report Type: 
  Country: None (occurrence: None)
  Receive Date: 20080613
  Receipt Date: 20080603
  Transmission Date: 20081010
  Serious: Yes (Hospitalization, Other)
  Sender: FDA-Public Use
  Company Number: IE-PFIZER INC-2008013640

PATIENT
  Age: 53 Year
  Sex: Male

DRUGS (3)
  1. CHANTIX [Suspect]
     Indication: SMOKING CESSATION THERAPY
     Route: 048
  2. ALCOHOL [Suspect]
     Route: 048
  3. ALL OTHER THERAPEUTIC PRODUCTS [Concomitant]

REACTIONS (6)
  - ALCOHOL ABUSE [None]
  - ALCOHOL WITHDRAWAL SYNDROME [None]
  - DEPRESSION [None]
  - DRUG TOXICITY [None]
  - SUICIDAL BEHAVIOUR [None]
  - UNEVALUABLE EVENT [None]
